FAERS Safety Report 8515047-3 (Version None)
Quarter: 2012Q3

REPORT INFORMATION
  Report Type: 
  Country: None (occurrence: None)
  Receive Date: 20120717
  Receipt Date: 20120702
  Transmission Date: 20120928
  Serious: Yes (Other)
  Sender: FDA-Public Use
  Company Number: AU-ARROW-2012-11857

PATIENT
  Age: 18 Year
  Sex: Female

DRUGS (2)
  1. ALBUTEROL [Suspect]
     Dosage: 15 MICRO GRAMS/ MIN
     Route: 042
  2. ALBUTEROL [Suspect]
     Indication: ASTHMA
     Dosage: 4 X 5MG/NEBULISER
     Route: 055

REACTIONS (6)
  - RESPIRATORY FAILURE [None]
  - RESPIRATORY ACIDOSIS [None]
  - HYPERGLYCAEMIA [None]
  - METABOLIC ACIDOSIS [None]
  - LACTIC ACIDOSIS [None]
  - HYPOKALAEMIA [None]
